FAERS Safety Report 12726416 (Version 1)
Quarter: 2016Q3

REPORT INFORMATION
  Report Type: Spontaneous
  Country: US (occurrence: US)
  Receive Date: 20160908
  Receipt Date: 20160908
  Transmission Date: 20161109
  Serious: No
  Sender: FDA-Public Use
  Company Number: GXBR2016US002603

PATIENT
  Age: 66 Year
  Sex: Male
  Weight: 85.26 kg

DRUGS (1)
  1. TAMSULOSIN HYDROCHLORIDE. [Suspect]
     Active Substance: TAMSULOSIN HYDROCHLORIDE
     Indication: BLADDER DYSFUNCTION
     Dosage: 0.4 MG, QD
     Route: 048

REACTIONS (2)
  - Nocturia [Not Recovered/Not Resolved]
  - Blood pressure increased [Not Recovered/Not Resolved]
